FAERS Safety Report 10920831 (Version 1)
Quarter: 2015Q1

REPORT INFORMATION
  Report Type: Spontaneous
  Country: US (occurrence: None)
  Receive Date: 20150312
  Receipt Date: 20150312
  Transmission Date: 20150721
  Serious: No
  Sender: FDA-Public Use
  Company Number: None

PATIENT
  Sex: Female

DRUGS (1)
  1. PROLIA [Suspect]
     Active Substance: DENOSUMAB
     Indication: SENILE OSTEOPOROSIS
     Dosage: 60 MG/ML SYRINGE, ONCE EVERY 6 MONTHS, SUBCUTANEOUSLY?
     Route: 058
     Dates: start: 20140830, end: 20150307

REACTIONS (2)
  - Fall [None]
  - Hip fracture [None]
